FAERS Safety Report 18941881 (Version 1)
Quarter: 2021Q1

REPORT INFORMATION
  Report Type: Report from Study
  Country: US (occurrence: US)
  Receive Date: 20210225
  Receipt Date: 20210225
  Transmission Date: 20210420
  Serious: Yes (Hospitalization)
  Sender: FDA-Public Use
  Company Number: US-OTSUKA-2021_005897

PATIENT
  Sex: Male

DRUGS (1)
  1. ASTX727 [Suspect]
     Active Substance: CEDAZURIDINE\DECITABINE
     Indication: CHRONIC LYMPHOCYTIC LEUKAEMIA
     Dosage: 135 MG (35 MG DECITABINE AND 100 MG CEDAZURIDINE), QD
     Route: 065
     Dates: start: 20201223

REACTIONS (2)
  - Product use in unapproved indication [Unknown]
  - Transfusion [Unknown]
